FAERS Safety Report 11861595 (Version 1)
Quarter: 2015Q4

REPORT INFORMATION
  Report Type: Spontaneous
  Country: US (occurrence: US)
  Receive Date: 20151222
  Receipt Date: 20151222
  Transmission Date: 20160305
  Serious: Yes (Other)
  Sender: FDA-Public Use
  Company Number: US-AKRON, INC.-1045800

PATIENT

DRUGS (1)
  1. METHYLENE BLUE INJECTION [Suspect]
     Active Substance: METHYLENE BLUE

REACTIONS (2)
  - Necrosis [Unknown]
  - Blister [Unknown]
